FAERS Safety Report 16210162 (Version 1)
Quarter: 2019Q2

REPORT INFORMATION
  Report Type: Report from Study
  Country: US (occurrence: US)
  Receive Date: 20190417
  Receipt Date: 20190417
  Transmission Date: 20190711
  Serious: Yes (Hospitalization)
  Sender: FDA-Public Use
  Company Number: US-BAXTER-2019BAX007915

PATIENT
  Age: 44 Year
  Sex: Female
  Weight: 62.3 kg

DRUGS (15)
  1. TRAMADOL. [Concomitant]
     Active Substance: TRAMADOL
     Indication: PAIN
     Route: 065
     Dates: start: 20180514
  2. MESNEX [Suspect]
     Active Substance: MESNA
     Indication: SOFT TISSUE SARCOMA
  3. IFOSFAMIDE FOR INJECTION [Suspect]
     Active Substance: IFOSFAMIDE
     Indication: SARCOMA METASTATIC
     Dosage: LAST DOSE PRIOR TO EVENT
     Route: 042
     Dates: start: 20180523, end: 20180523
  4. SENNA DOCUSATE [Concomitant]
     Indication: CONSTIPATION
     Route: 065
     Dates: start: 20180521
  5. COMPAZINE [Concomitant]
     Active Substance: PROCHLORPERAZINE MALEATE
     Indication: NAUSEA
     Route: 065
     Dates: start: 20180521
  6. CARAFATE [Concomitant]
     Active Substance: SUCRALFATE
     Indication: PROPHYLAXIS
     Route: 065
     Dates: start: 20180521
  7. CARAFATE [Concomitant]
     Active Substance: SUCRALFATE
     Indication: ANTIFUNGAL PROPHYLAXIS
  8. OLARATUMAB [Suspect]
     Active Substance: OLARATUMAB
     Indication: SOFT TISSUE SARCOMA
     Dosage: RESTARTED, CYCLE2 DAY 1 (C2D1)
     Route: 042
     Dates: start: 20180612
  9. DOXORUBICIN [Suspect]
     Active Substance: DOXORUBICIN
     Indication: SARCOMA METASTATIC
     Dosage: DAYS 1 TO 3 OF A 21 DAY CYCLE, COHORT 1
     Route: 042
     Dates: start: 20180521
  10. DOXORUBICIN [Suspect]
     Active Substance: DOXORUBICIN
     Indication: SOFT TISSUE SARCOMA
     Dosage: LAST DOSE PRIOR TO EVENT
     Route: 042
     Dates: start: 20180523, end: 20180523
  11. ZOFRAN [Concomitant]
     Active Substance: ONDANSETRON HYDROCHLORIDE
     Indication: NAUSEA
     Route: 065
     Dates: start: 20180521
  12. MORPHINE [Concomitant]
     Active Substance: MORPHINE
     Indication: PAIN
     Route: 065
     Dates: start: 20180521
  13. MESNEX [Suspect]
     Active Substance: MESNA
     Indication: SARCOMA METASTATIC
     Dosage: DAYS 1 TO 4 OF 21 DAY CYCLE, LAST DOSE PRIOR TO EVENT ON 21MAY2018, COHORT 1
     Route: 042
     Dates: start: 20180521
  14. IFOSFAMIDE FOR INJECTION [Suspect]
     Active Substance: IFOSFAMIDE
     Indication: SOFT TISSUE SARCOMA
     Dosage: DAYS 1 TO 4 OF A 21 DAY CYCLE, COHORT 1
     Route: 042
     Dates: start: 20180521
  15. OLARATUMAB [Suspect]
     Active Substance: OLARATUMAB
     Indication: SARCOMA METASTATIC
     Dosage: DAYS 1 AND 8 OF A 21 DAY CYCLE, LAST DOSE PRIOR TO EVENT ON 21MAY2018, COHORT 1
     Route: 042
     Dates: start: 20180521, end: 20180521

REACTIONS (1)
  - Febrile neutropenia [Recovered/Resolved]

NARRATIVE: CASE EVENT DATE: 20180529
